FAERS Safety Report 12562991 (Version 2)
Quarter: 2016Q3

REPORT INFORMATION
  Report Type: Spontaneous
  Country: US (occurrence: US)
  Receive Date: 20160715
  Receipt Date: 20160817
  Transmission Date: 20161109
  Serious: Yes (Death, Life-Threatening, Other)
  Sender: FDA-Public Use
  Company Number: US-009507513-1607USA006846

PATIENT
  Age: 26 Year
  Sex: Female

DRUGS (8)
  1. GEODON [Concomitant]
     Active Substance: ZIPRASIDONE HYDROCHLORIDE\ZIPRASIDONE MESYLATE
  2. PROTONIX [Concomitant]
     Active Substance: PANTOPRAZOLE SODIUM
     Dosage: 40 MG, QD
  3. ROBAXIN [Concomitant]
     Active Substance: METHOCARBAMOL
     Dosage: 750 DF, TID
  4. ZOFRAN [Concomitant]
     Active Substance: ONDANSETRON HYDROCHLORIDE
     Dosage: 4 MG, TID
  5. LYRICA [Concomitant]
     Active Substance: PREGABALIN
     Dosage: 75 MG, BID
  6. BELSOMRA [Suspect]
     Active Substance: SUVOREXANT
     Indication: INSOMNIA
     Dosage: 20 MG, ONCE A DAY
     Route: 048
     Dates: start: 20160518
  7. ALPRAZOLAM. [Concomitant]
     Active Substance: ALPRAZOLAM
     Dosage: 1 MG, TID
     Route: 048
  8. WELLBUTRIN SR [Concomitant]
     Active Substance: BUPROPION HYDROCHLORIDE
     Dosage: 150 MG, QD

REACTIONS (2)
  - Death [Fatal]
  - Overdose [Unknown]
